FAERS Safety Report 8385788-X (Version None)
Quarter: 2012Q2

REPORT INFORMATION
  Report Type: 
  Country: None (occurrence: None)
  Receive Date: 20120523
  Receipt Date: 20120515
  Transmission Date: 20120825
  Serious: Yes (Other)
  Sender: FDA-Public Use
  Company Number: DSA_57107_2012

PATIENT
  Age: 79 Year
  Sex: Male

DRUGS (2)
  1. DILTIAZEM HYDROCHLORIDE [Suspect]
     Indication: PRODUCT USED FOR UNKNOWN INDICATION
     Dosage: (1000 MG, DAILY INTRAVENOUS (NOT OTHERWISE SPECIFIED)), (1500 MG, DAILY INTRAVENOUS (NOT OTHERWISE S
     Route: 042
     Dates: start: 20120101
  2. DILTIAZEM HYDROCHLORIDE [Suspect]
     Indication: PRODUCT USED FOR UNKNOWN INDICATION
     Dosage: (1000 MG, DAILY INTRAVENOUS (NOT OTHERWISE SPECIFIED)), (1500 MG, DAILY INTRAVENOUS (NOT OTHERWISE S
     Route: 042
     Dates: start: 20120401, end: 20120101

REACTIONS (1)
  - HYPERCALCAEMIA [None]
